FAERS Safety Report 22140538 (Version 1)
Quarter: 2023Q1

REPORT INFORMATION
  Report Type: Other
  Country: US (occurrence: None)
  Receive Date: 20230327
  Receipt Date: 20230327
  Transmission Date: 20230417
  Serious: No
  Sender: FDA-Public Use
  Company Number: US-ROCHE-3314105

PATIENT
  Sex: Female
  Weight: 112.14 kg

DRUGS (13)
  1. OCREVUS [Suspect]
     Active Substance: OCRELIZUMAB
     Indication: Relapsing-remitting multiple sclerosis
     Dosage: LAST DAY OF TREATMENT: 10/APRIL/2022?INFUSE 300MG INTRAVENOUSLY ON DAYS 1 AND 15 THEN INFUSE 600MG I
     Route: 042
  2. LASIX [Concomitant]
     Active Substance: FUROSEMIDE
  3. LEVOTHYROXINE [Concomitant]
     Active Substance: LEVOTHYROXINE
  4. ASPIRIN [Concomitant]
     Active Substance: ASPIRIN
  5. MECLIZINE [Concomitant]
     Active Substance: MECLIZINE HYDROCHLORIDE
  6. VENTOLIN [Concomitant]
     Active Substance: ALBUTEROL SULFATE
  7. FLOVENT [Concomitant]
     Active Substance: FLUTICASONE PROPIONATE
  8. BACLOFEN [Concomitant]
     Active Substance: BACLOFEN
  9. TOPIRAMATE [Concomitant]
     Active Substance: TOPIRAMATE
  10. METHYLPHENIDATE [Concomitant]
     Active Substance: METHYLPHENIDATE
  11. LOSARTAN [Concomitant]
     Active Substance: LOSARTAN
  12. TRICOR [Concomitant]
     Active Substance: FENOFIBRATE
  13. SINGULAIR [Concomitant]
     Active Substance: MONTELUKAST SODIUM

REACTIONS (7)
  - COVID-19 [Unknown]
  - Hypoaesthesia [Unknown]
  - Headache [Unknown]
  - Hypersomnia [Unknown]
  - Paraesthesia [Unknown]
  - Grip strength decreased [Unknown]
  - Micturition urgency [Unknown]
